FAERS Safety Report 7344851-2 (Version None)
Quarter: 2011Q1

REPORT INFORMATION
  Report Type: 
  Country: None (occurrence: None)
  Receive Date: 20110310
  Receipt Date: 20110309
  Transmission Date: 20110831
  Serious: Yes (Other)
  Sender: FDA-Public Use
  Company Number: US-PFIZER INC-2011052060

PATIENT
  Sex: Female
  Weight: 111 kg

DRUGS (6)
  1. ACIPHEX [Concomitant]
     Indication: GASTROOESOPHAGEAL REFLUX DISEASE
     Dosage: 20 MG, 1X/DAY
  2. AVAPRO [Concomitant]
     Indication: HYPERTENSION
     Dosage: 300 MG, 1X/DAY
  3. VITAMIN D [Concomitant]
     Dosage: 55 IU, 2X/DAY
  4. CICLOSPORIN [Concomitant]
     Dosage: UNK
     Route: 047
  5. SYNTHROID [Concomitant]
     Indication: HYPERTHYROIDISM
     Dosage: 50 UG, WEEKLY
  6. CELEBREX [Suspect]
     Indication: OSTEOARTHRITIS
     Dosage: 200 MG, 1X/DAY
     Route: 048
     Dates: start: 20110209

REACTIONS (1)
  - PHLEBITIS [None]
